FAERS Safety Report 19139620 (Version 1)
Quarter: 2021Q2

REPORT INFORMATION
  Report Type: Spontaneous
  Country: US (occurrence: US)
  Receive Date: 20210414
  Receipt Date: 20210414
  Transmission Date: 20210717
  Serious: No
  Sender: FDA-Public Use
  Company Number: None

PATIENT
  Age: 27 Year
  Sex: Male

DRUGS (1)
  1. HUMIRA [Suspect]
     Active Substance: ADALIMUMAB
     Indication: UVEITIS
     Dosage: ?          OTHER FREQUENCY:14;?
     Route: 030
     Dates: start: 20200526, end: 20210331

REACTIONS (3)
  - Eye operation [None]
  - Intentional dose omission [None]
  - Cataract [None]

NARRATIVE: CASE EVENT DATE: 20210414
